FAERS Safety Report 13842406 (Version 1)
Quarter: 2017Q3

REPORT INFORMATION
  Report Type: Report from Study
  Country: VN (occurrence: VN)
  Receive Date: 20170808
  Receipt Date: 20170808
  Transmission Date: 20171127
  Serious: Yes (Death, Hospitalization)
  Sender: FDA-Public Use
  Company Number: VN-ASTRAZENECA-2016SF08074

PATIENT
  Age: 19766 Day
  Sex: Male

DRUGS (10)
  1. GLUCOSE [Concomitant]
     Active Substance: DEXTROSE
     Indication: FATIGUE
     Dosage: 100.0ML ONCE/SINGLE ADMINISTRATION
     Route: 042
     Dates: start: 20160915, end: 20160915
  2. MEDI4736 [Suspect]
     Active Substance: DURVALUMAB
     Indication: SQUAMOUS CELL CARCINOMA OF HEAD AND NECK
     Route: 042
     Dates: start: 20161123, end: 20161123
  3. AMINOPLASMAL [Concomitant]
     Indication: FATIGUE
     Route: 042
     Dates: start: 20160916, end: 20160918
  4. GRAGESIC-T [Concomitant]
     Indication: PAIN
     Route: 048
     Dates: start: 20160916, end: 20160927
  5. KYOMINOTIN [Concomitant]
     Indication: PROPHYLAXIS
     Route: 042
     Dates: start: 20160916, end: 20160918
  6. MEDI4736 [Suspect]
     Active Substance: DURVALUMAB
     Indication: SQUAMOUS CELL CARCINOMA OF HEAD AND NECK
     Route: 042
     Dates: start: 20160915, end: 20160915
  7. CECLOR RETARD (CEFACLOR) [Concomitant]
     Indication: INFLAMMATION
     Route: 048
     Dates: start: 20160915, end: 20160919
  8. MEDI4736 [Suspect]
     Active Substance: DURVALUMAB
     Indication: SQUAMOUS CELL CARCINOMA OF HEAD AND NECK
     Route: 042
     Dates: start: 20161014, end: 20161014
  9. GLUCOSE [Concomitant]
     Active Substance: DEXTROSE
     Indication: FATIGUE
     Dosage: 500.0ML ONCE/SINGLE ADMINISTRATION
     Route: 042
     Dates: start: 20160916, end: 20160918
  10. ACC [Concomitant]
     Active Substance: ACETYLCYSTEINE
     Indication: INFLAMMATION
     Dosage: 1.00 SACHET QID
     Route: 048
     Dates: start: 20160915, end: 20160919

REACTIONS (1)
  - Pneumonia [Recovering/Resolving]

NARRATIVE: CASE EVENT DATE: 20160923
